FAERS Safety Report 6648477-5 (Version None)
Quarter: 2010Q1

REPORT INFORMATION
  Report Type: 
  Country: None (occurrence: None)
  Receive Date: 20100324
  Receipt Date: 20100310
  Transmission Date: 20100710
  Serious: Yes (Death, Life-Threatening, Hospitalization, Other)
  Sender: FDA-Public Use
  Company Number: FR-BAYER-02/00916-USE

PATIENT
  Age: 40 Year

DRUGS (2)
  1. BETAPACE [Suspect]
     Dosage: 4.8 GRAMS
     Route: 048
  2. ISOPTIN [Suspect]
     Dosage: 7.2 GRAMS
     Route: 048

REACTIONS (4)
  - CARDIAC ARREST [None]
  - MULTI-ORGAN FAILURE [None]
  - PERIPHERAL ISCHAEMIA [None]
  - RETROPERITONEAL HAEMORRHAGE [None]
